FAERS Safety Report 8235599-0 (Version None)
Quarter: 2012Q1

REPORT INFORMATION
  Report Type: 
  Country: None (occurrence: None)
  Receive Date: 20120326
  Receipt Date: 20120316
  Transmission Date: 20120608
  Serious: Yes (Death, Hospitalization)
  Sender: FDA-Public Use
  Company Number: ES-ELI_LILLY_AND_COMPANY-ES201203004689

PATIENT
  Sex: Female
  Weight: 70 kg

DRUGS (6)
  1. ASPIRIN [Concomitant]
     Indication: PULMONARY FIBROSIS
     Dosage: UNK
     Dates: end: 20120110
  2. FLUTICASONE PROPIONATE/SALMETEROL [Concomitant]
     Indication: PULMONARY FIBROSIS
     Dosage: 1 DF, QD
     Dates: end: 20120110
  3. CORTISONE ACETATE [Concomitant]
     Indication: PULMONARY FIBROSIS
     Dosage: UNK
     Dates: end: 20120110
  4. SPIRIVA [Concomitant]
     Indication: PULMONARY FIBROSIS
     Dosage: 1 DF, BID
     Dates: end: 20120110
  5. FORTEO [Suspect]
     Indication: OSTEOPOROSIS
     Dosage: 20 UG, QD
     Route: 058
     Dates: start: 20110622, end: 20120108
  6. ACETILCISTEINA [Concomitant]
     Indication: PULMONARY FIBROSIS
     Dosage: 600 MG, EVERY 8 HRS
     Dates: end: 20120110

REACTIONS (2)
  - RESPIRATORY FAILURE [None]
  - PNEUMONIA [None]
